FAERS Safety Report 18247590 (Version 1)
Quarter: 2020Q3

REPORT INFORMATION
  Report Type: Spontaneous
  Country: US (occurrence: US)
  Receive Date: 20200909
  Receipt Date: 20200909
  Transmission Date: 20201103
  Serious: Yes (Other)
  Sender: FDA-Public Use
  Company Number: US-BAYER-2020-185534

PATIENT
  Sex: Female

DRUGS (1)
  1. MIDOL COMPLETE [Suspect]
     Active Substance: ACETAMINOPHEN\CAFFEINE\PYRILAMINE MALEATE
     Dosage: 4 DF, QD
     Route: 048

REACTIONS (11)
  - Feeling abnormal [Unknown]
  - Hypoaesthesia [Unknown]
  - Insomnia [Unknown]
  - Panic attack [Unknown]
  - Tremor [Unknown]
  - Syncope [Unknown]
  - Incorrect dose administered [Unknown]
  - Loss of consciousness [Unknown]
  - Seizure like phenomena [Unknown]
  - Abdominal discomfort [Unknown]
  - Feeding disorder [Not Recovered/Not Resolved]
